FAERS Safety Report 6459921-0 (Version None)
Quarter: 2009Q4

REPORT INFORMATION
  Report Type: 
  Country: None (occurrence: None)
  Receive Date: 20091129
  Receipt Date: 20091117
  Transmission Date: 20100525
  Serious: Yes (Other)
  Sender: FDA-Public Use
  Company Number: PHEH2008US11623

PATIENT
  Sex: Female

DRUGS (4)
  1. EXJADE [Suspect]
     Indication: APLASTIC ANAEMIA
     Dosage: 1125 MG, QD
     Route: 048
     Dates: start: 20080421
  2. SANDIMMUNE [Suspect]
     Indication: IMMUNOSUPPRESSION
  3. IMMUNOSUPPRESSANTS [Concomitant]
  4. ANTIINFECTIVES [Concomitant]

REACTIONS (3)
  - BLOOD CREATININE INCREASED [None]
  - BLOOD UREA INCREASED [None]
  - TUBULOINTERSTITIAL NEPHRITIS [None]
